FAERS Safety Report 10198226 (Version 1)
Quarter: 2014Q2

REPORT INFORMATION
  Report Type: Spontaneous
  Country: US (occurrence: None)
  Receive Date: 20140523
  Receipt Date: 20140523
  Transmission Date: 20141212
  Serious: No
  Sender: FDA-Public Use
  Company Number: None

PATIENT
  Age: 64 Year
  Sex: Male
  Weight: 83.92 kg

DRUGS (9)
  1. TRAZODONE VINTAGE PHARMACEUTICALS, HUNTSVILLE, AL [Suspect]
     Indication: POST-TRAUMATIC STRESS DISORDER
     Dosage: 1 A DAY BED TIME BY MOUTH
     Route: 048
     Dates: start: 1996
  2. OXAZEPAM VINTAGE PHARMACEUTICALS HUNTSVILLE AL [Suspect]
     Indication: POST-TRAUMATIC STRESS DISORDER
     Dosage: 3 TIMES A DAY  BY MOUTH
     Route: 048
     Dates: start: 1998
  3. SERTRALINE [Concomitant]
  4. ALBUTEROL [Concomitant]
  5. SYMBICORT [Concomitant]
  6. COMBIVENT RESPIMAT [Concomitant]
  7. OXYGEN [Concomitant]
  8. BENADRYL [Concomitant]
  9. CENTRUM SILVER [Concomitant]

REACTIONS (6)
  - Anxiety [None]
  - Muscular weakness [None]
  - Gait disturbance [None]
  - Emotional distress [None]
  - Product substitution issue [None]
  - Drug ineffective [None]
